FAERS Safety Report 8774653 (Version 3)
Quarter: 2013Q3

REPORT INFORMATION
  Report Type: Report from Study
  Country: AU (occurrence: AU)
  Receive Date: 20120907
  Receipt Date: 20130819
  Transmission Date: 20140515
  Serious: Yes (Life-Threatening, Hospitalization)
  Sender: FDA-Public Use
  Company Number: AU-009507513-2012SP016936

PATIENT
  Age: 32 Year
  Sex: Female
  Weight: 71.5 kg

DRUGS (26)
  1. TEMOZOLOMIDE [Suspect]
     Indication: GLIOMA
     Dosage: 270 MG, ADJUVANT 150-200 MG/M2/D, (EVERY 28 DAYS)
     Route: 048
     Dates: start: 20111201, end: 20120302
  2. TEMOZOLOMIDE [Suspect]
     Dosage: UNK, CONCURRENT 75 MG/M2/D, DURING RT
     Route: 048
  3. CARBAMAZEPINE [Concomitant]
     Indication: CONVULSION
     Dosage: 300 MG, BID
     Route: 048
     Dates: end: 20120326
  4. HYSERENIN TABLETS 100 MG [Concomitant]
     Indication: CONVULSION
     Dosage: 300 MG, UNK
     Route: 048
     Dates: start: 201108, end: 20120321
  5. FLUOXETINE [Concomitant]
     Indication: DEPRESSION
     Dosage: 40 MG, QAM
     Route: 048
     Dates: start: 201108
  6. FLUOXETINE [Concomitant]
     Dosage: 60 MG, QD
  7. CONTROLOC [Concomitant]
     Indication: GASTROOESOPHAGEAL REFLUX DISEASE
     Dosage: 40 MG, QD
     Route: 048
     Dates: start: 20120323
  8. SERETIDE [Concomitant]
     Indication: CHRONIC OBSTRUCTIVE PULMONARY DISEASE
     Dosage: 2 DF, BID
     Route: 055
  9. FLUTICASONE PROPIONATE (+) SALMETEROL XINAFOATE [Concomitant]
     Indication: CHRONIC OBSTRUCTIVE PULMONARY DISEASE
     Dosage: 250/25 2 PUFFS
     Route: 055
  10. LEVETIRACETAM [Concomitant]
     Indication: FEELING OF RELAXATION
     Dosage: 750 MG, BID
     Route: 048
     Dates: start: 20120323, end: 20120326
  11. LEVETIRACETAM [Concomitant]
     Indication: CONVULSION
  12. METOCLOPRAMIDE HYDROCHLORIDE [Concomitant]
     Indication: GASTROINTESTINAL DISORDER
     Dosage: 10 MG, Q6H
     Route: 048
     Dates: start: 20120325
  13. DOXYCYCLINE [Concomitant]
     Indication: INFECTION PROPHYLAXIS
     Dosage: 100 MG, BID
     Route: 048
     Dates: start: 20120326, end: 20120408
  14. CLONAZEPAM [Concomitant]
     Indication: FEELING OF RELAXATION
     Dosage: 0.5 MG, PRN
     Route: 048
     Dates: start: 20120328
  15. CLONAZEPAM [Concomitant]
     Dosage: UNK
     Dates: start: 20120408
  16. PANADOL [Concomitant]
     Indication: HEADACHE
     Dosage: 1 G, QID
     Route: 048
     Dates: start: 20120404
  17. MAGMIN [Concomitant]
     Indication: MINERAL SUPPLEMENTATION
     Dosage: 500 MG, BID
     Route: 048
     Dates: start: 20120409
  18. CLEXANE (ENOXAPARIN SODIUM) [Concomitant]
     Indication: PROPHYLAXIS
     Dosage: UPDATE (03MAY2012)- USED FOR PREVENTION OF THROMBUS
     Route: 058
     Dates: start: 20120419, end: 20120429
  19. CLEXANE (ENOXAPARIN SODIUM) [Concomitant]
     Indication: PROPHYLAXIS
  20. TEMAZEPAM [Concomitant]
     Indication: INSOMNIA
     Dosage: 10 MG, PRN
     Route: 048
     Dates: start: 20120501, end: 20120501
  21. CEFTRIAXONE SODIUM [Concomitant]
     Indication: PROPHYLAXIS URINARY TRACT INFECTION
     Dosage: 1 G, QD
     Route: 042
     Dates: start: 20120419, end: 20120420
  22. ROXITHROMYCIN [Concomitant]
     Indication: PROPHYLAXIS URINARY TRACT INFECTION
     Dosage: 300 MG, QD
     Route: 048
     Dates: start: 20120419, end: 20120501
  23. OXYCODONE [Concomitant]
     Dosage: 5 MG, UNKNOWN
     Route: 048
     Dates: start: 20120324, end: 20120404
  24. PANADEINE (ACETAMINOPHEN (+) CODEINE PHOSPHATE) [Concomitant]
     Dosage: UNK
     Route: 048
     Dates: start: 20120323
  25. BEBETINA [Concomitant]
     Dosage: 1 G, QD
     Route: 065
  26. BEBETINA [Concomitant]
     Dosage: 1 UNK, UNK

REACTIONS (9)
  - Lower respiratory tract infection [Unknown]
  - Pneumonitis [Unknown]
  - Pneumocystis jirovecii pneumonia [Unknown]
  - Acute respiratory failure [Not Recovered/Not Resolved]
  - Infectious pleural effusion [Recovered/Resolved]
  - Gastroenteritis viral [Recovered/Resolved]
  - Hepatitis acute [Not Recovered/Not Resolved]
  - Dyspnoea [Recovered/Resolved]
  - Pneumonitis [Recovered/Resolved]
